FAERS Safety Report 6765659-2 (Version None)
Quarter: 2010Q2

REPORT INFORMATION
  Report Type: 
  Country: None (occurrence: None)
  Receive Date: 20100611
  Receipt Date: 20100605
  Transmission Date: 20101027
  Serious: Yes (Hospitalization, Other)
  Sender: FDA-Public Use
  Company Number: US-ASTRAZENECA-2008UW00803

PATIENT
  Age: 18212 Day
  Sex: Female

DRUGS (6)
  1. SEROQUEL [Suspect]
     Dosage: 100-300 MG AT NIGHT
     Route: 048
     Dates: start: 20040629
  2. XANAX [Concomitant]
     Indication: ANXIETY
     Route: 048
     Dates: start: 20040629
  3. LITHIUM CARBONATE [Concomitant]
     Indication: MOOD SWINGS
  4. ZYPREXA [Concomitant]
     Indication: SLEEP DISORDER
  5. CELEXA [Concomitant]
     Indication: AFFECTIVE DISORDER
  6. PROZAC [Concomitant]
     Route: 048
     Dates: start: 20040629

REACTIONS (6)
  - BACK PAIN [None]
  - EXCORIATION [None]
  - FOOT FRACTURE [None]
  - LOSS OF CONSCIOUSNESS [None]
  - ROAD TRAFFIC ACCIDENT [None]
  - WOUND [None]
